FAERS Safety Report 22598587 (Version 1)
Quarter: 2023Q2

REPORT INFORMATION
  Report Type: Spontaneous
  Country: US (occurrence: US)
  Receive Date: 20230614
  Receipt Date: 20230614
  Transmission Date: 20230722
  Serious: No
  Sender: FDA-Public Use
  Company Number: US-JNJFOC-20230563041

PATIENT
  Age: 87 Year
  Sex: Female

DRUGS (2)
  1. IMODIUM MULTI-SYMPTOM RELIEF [Suspect]
     Active Substance: DIMETHICONE\LOPERAMIDE HYDROCHLORIDE
     Indication: Diarrhoea
     Dosage: 1 CAPLET, SOMETIMES 3 CAPLETS
     Route: 065
     Dates: start: 2023
  2. IMODIUM MULTI-SYMPTOM RELIEF [Suspect]
     Active Substance: DIMETHICONE\LOPERAMIDE HYDROCHLORIDE
     Indication: Internal haemorrhage

REACTIONS (2)
  - Incorrect product administration duration [Unknown]
  - Overdose [Unknown]

NARRATIVE: CASE EVENT DATE: 20230101
